FAERS Safety Report 11593069 (Version 2)
Quarter: 2015Q4

REPORT INFORMATION
  Report Type: Spontaneous
  Country: IT (occurrence: IT)
  Receive Date: 20151005
  Receipt Date: 20151016
  Transmission Date: 20160304
  Serious: Yes (Other)
  Sender: FDA-Public Use
  Company Number: IT-PFIZER INC-2015325642

PATIENT
  Age: 50 Year
  Sex: Female

DRUGS (3)
  1. IRINOTECAN HCL [Suspect]
     Active Substance: IRINOTECAN HYDROCHLORIDE
     Dosage: 350 MG, CYCLIC
     Route: 042
     Dates: start: 20150512
  2. CAPECITABINA ACCORD [Suspect]
     Active Substance: CAPECITABINE
     Dosage: 3000 MG, CYCLIC
     Route: 042
     Dates: start: 20150512
  3. ERBITUX [Suspect]
     Active Substance: CETUXIMAB
     Indication: RECTAL CANCER
     Dosage: 400 MG, CYCLIC
     Route: 042
     Dates: start: 20150626

REACTIONS (2)
  - Dysentery [Recovering/Resolving]
  - Rash [Recovering/Resolving]

NARRATIVE: CASE EVENT DATE: 20150923
